FAERS Safety Report 14160525 (Version 1)
Quarter: 2017Q4

REPORT INFORMATION
  Report Type: Spontaneous
  Country: US (occurrence: None)
  Receive Date: 20171103
  Receipt Date: 20171103
  Transmission Date: 20180321
  Serious: Yes (Other)
  Sender: FDA-Public Use
  Company Number: None

PATIENT
  Age: 49 Year
  Sex: Female
  Weight: 117.93 kg

DRUGS (4)
  1. DIPHENHYDRIMINE HCI [Concomitant]
  2. RAITIDINE [Concomitant]
  3. MIRENA [Suspect]
     Active Substance: LEVONORGESTREL
     Indication: MENSTRUAL CYCLE MANAGEMENT
     Dates: start: 20170331
  4. MONTELUKAST [Concomitant]
     Active Substance: MONTELUKAST SODIUM

REACTIONS (4)
  - Vaginal haemorrhage [None]
  - Rash erythematous [None]
  - Muscle spasms [None]
  - Urticaria [None]

NARRATIVE: CASE EVENT DATE: 20170617
